FAERS Safety Report 10041800 (Version 1)
Quarter: 2014Q1

REPORT INFORMATION
  Report Type: Spontaneous
  Country: US (occurrence: US)
  Receive Date: 20140327
  Receipt Date: 20140327
  Transmission Date: 20141002
  Serious: Yes (Other)
  Sender: FDA-Public Use
  Company Number: PHHY2014US032324

PATIENT
  Age: 64 Year
  Sex: Female

DRUGS (4)
  1. HYDRALAZINE [Suspect]
     Indication: HYPERTENSION
     Dosage: 100 MG, TID
  2. CLONIDINE [Concomitant]
     Dosage: 0.1 MG, QID
  3. HYDROCHLOROTHIAZIDE [Concomitant]
     Dosage: 25 MG, QD
  4. VERAPAMIL [Concomitant]
     Dosage: 180 MG, QID

REACTIONS (6)
  - Glomerulonephritis [Unknown]
  - Lung disorder [Unknown]
  - Blood creatinine increased [Unknown]
  - Renal failure acute [Unknown]
  - Renal impairment [Unknown]
  - Contusion [Unknown]
